FAERS Safety Report 9790062 (Version 2)
Quarter: 2014Q1

REPORT INFORMATION
  Report Type: Spontaneous
  Country: US (occurrence: US)
  Receive Date: 20131231
  Receipt Date: 20140121
  Transmission Date: 20141002
  Serious: Yes (Death, Hospitalization)
  Sender: FDA-Public Use
  Company Number: US-B.I. PHARMACEUTICALS,INC./RIDGEFIELD-2013-BI-44002BP

PATIENT
  Age: 54 Year
  Sex: Female

DRUGS (11)
  1. PRADAXA [Suspect]
     Indication: ATRIAL FIBRILLATION
     Dosage: 300 MG
     Route: 048
     Dates: start: 2012
  2. OMEPRAZOLE [Concomitant]
     Route: 048
  3. BABY ASPIRIN [Concomitant]
     Route: 048
  4. DIOVAN [Concomitant]
     Route: 048
  5. RANEXA [Concomitant]
     Route: 048
  6. INSULIN [Concomitant]
     Dosage: (SUBCUTANEOUS)
     Route: 058
  7. INSULIN [Concomitant]
     Dosage: (SUBCUTANEOUS)
     Route: 058
  8. METOPROLOL TARTRATE [Concomitant]
     Route: 048
  9. LIPITOR [Concomitant]
     Route: 048
  10. GABAPENTIN [Concomitant]
     Route: 048
  11. ISOSORBIDE MONONITRATE ER [Concomitant]
     Route: 048

REACTIONS (1)
  - Diabetic coma [Fatal]
